FAERS Safety Report 7673446-6 (Version None)
Quarter: 2011Q3

REPORT INFORMATION
  Report Type: 
  Country: None (occurrence: None)
  Receive Date: 20110810
  Receipt Date: 20110804
  Transmission Date: 20111222
  Serious: No
  Sender: FDA-Public Use
  Company Number: US-PFIZER INC-2011179111

PATIENT
  Sex: Female
  Weight: 95 kg

DRUGS (2)
  1. PROTONIX [Suspect]
     Indication: GASTROOESOPHAGEAL REFLUX DISEASE
     Dosage: 40 MG, 1X/DAY
     Route: 048
     Dates: start: 20110802, end: 20110803
  2. ZOLOFT [Concomitant]
     Dosage: UNK

REACTIONS (5)
  - CHEILITIS [None]
  - LIP BLISTER [None]
  - RASH [None]
  - URTICARIA [None]
  - LIP SWELLING [None]
